FAERS Safety Report 5361875-5 (Version None)
Quarter: 2007Q2

REPORT INFORMATION
  Report Type: 
  Country: None (occurrence: None)
  Receive Date: 20070615
  Receipt Date: 20070606
  Transmission Date: 20071010
  Serious: Yes (Hospitalization)
  Sender: FDA-Public Use
  Company Number: 2007SP000389

PATIENT
  Age: 60 Year
  Sex: Male
  Weight: 93.2 kg

DRUGS (10)
  1. XOPENEX [Suspect]
     Indication: CHRONIC OBSTRUCTIVE PULMONARY DISEASE
     Dosage: PRN; INHALATION
     Route: 055
  2. HERBAL PREPARATION [Concomitant]
  3. TAMSULOSIN HCL [Concomitant]
  4. MUCINEX [Concomitant]
  5. TYLENOL EXTRA-STRENGTH [Concomitant]
  6. ALBUTEROL [Concomitant]
  7. VITAMIN B-12 [Concomitant]
  8. SAW PALMETTO [Concomitant]
  9. VIAGRA [Concomitant]
  10. UROXATRAL [Concomitant]

REACTIONS (13)
  - APPENDICITIS [None]
  - CALCULUS BLADDER [None]
  - CHEST DISCOMFORT [None]
  - DYSPNOEA [None]
  - GASTROINTESTINAL INFLAMMATION [None]
  - GASTROINTESTINAL NECROSIS [None]
  - GASTROOESOPHAGEAL REFLUX DISEASE [None]
  - HEPATIC CYST [None]
  - INCREASED UPPER AIRWAY SECRETION [None]
  - PERITONITIS [None]
  - PURULENCE [None]
  - RENAL CYST [None]
  - WHEEZING [None]
